FAERS Safety Report 5749533-6 (Version None)
Quarter: 2008Q2

REPORT INFORMATION
  Report Type: 
  Country: None (occurrence: None)
  Receive Date: 20080527
  Receipt Date: 20080523
  Transmission Date: 20081010
  Serious: Yes (Other)
  Sender: FDA-Public Use
  Company Number: B0522014A

PATIENT
  Age: 53 Year
  Sex: Female

DRUGS (4)
  1. REQUIP [Suspect]
     Indication: PARKINSON'S DISEASE
     Dosage: 2MG THREE TIMES PER DAY
     Route: 048
     Dates: start: 20080301
  2. NAUZELIN [Concomitant]
     Dosage: 10MG THREE TIMES PER DAY
     Route: 048
  3. LIVALO [Concomitant]
     Dosage: 1MG TWICE PER DAY
     Route: 048
  4. EPADEL [Concomitant]
     Dosage: 600MG THREE TIMES PER DAY
     Route: 048

REACTIONS (1)
  - SUDDEN ONSET OF SLEEP [None]
